FAERS Safety Report 20152987 (Version 1)
Quarter: 2021Q4

REPORT INFORMATION
  Report Type: Spontaneous
  Country: GB (occurrence: GB)
  Receive Date: 20211206
  Receipt Date: 20211206
  Transmission Date: 20220303
  Serious: Yes (Other)
  Sender: FDA-Public Use
  Company Number: GB-ADVANZ PHARMA-202111007719

PATIENT
  Age: 62 Year
  Sex: Male

DRUGS (20)
  1. LEVOTHYROXINE [Suspect]
     Active Substance: LEVOTHYROXINE
     Indication: Thyroidectomy
     Dosage: 875 UG, WEEKLY
     Dates: start: 201603
  2. LEVOTHYROXINE [Suspect]
     Active Substance: LEVOTHYROXINE
     Indication: Thyroid cancer
     Dosage: 125 MICROGRAM DAILY; (100MCG TABLET + 25MCG TABLET),  BN: 86612, EXP: JUL-22
  3. LEVOTHYROXINE [Suspect]
     Active Substance: LEVOTHYROXINE
     Indication: Thyroid cancer
     Dosage: 150 UG, WEEKLY (INCREASED DOSE BY 25MCG WEEKLY)
  4. LEVOTHYROXINE [Suspect]
     Active Substance: LEVOTHYROXINE
     Indication: Thyroidectomy
     Dosage: 50 UG, WEEKLY (CUT BY 50MCG/WEEK)
     Dates: start: 201902
  5. LEVOTHYROXINE [Suspect]
     Active Substance: LEVOTHYROXINE
     Dosage: 1150 UG, WEEKLY
     Dates: end: 201603
  6. LEVOTHYROXINE [Suspect]
     Active Substance: LEVOTHYROXINE
     Dosage: 50 UG, (INCREASED BY 50MCG)
     Dates: start: 202010
  7. LEVOTHYROXINE [Suspect]
     Active Substance: LEVOTHYROXINE
     Dosage: UNK (DOSE DECREASED)
     Dates: start: 201702
  8. LEVOTHYROXINE [Suspect]
     Active Substance: LEVOTHYROXINE
     Dosage: 50 UG, (CUT BY 50MCG)
     Dates: start: 202102
  9. LEVOTHYROXINE [Suspect]
     Active Substance: LEVOTHYROXINE
     Dosage: UNK (DOSE DECREASED)
     Dates: start: 201702
  10. LEVOTHYROXINE [Suspect]
     Active Substance: LEVOTHYROXINE
     Dosage: 1150 UG, WEEKLY
     Dates: end: 201603
  11. LEVOTHYROXINE [Suspect]
     Active Substance: LEVOTHYROXINE
     Dosage: 125 MICROGRAM DAILY; (100MCG TABLET + 25MCG TABLET)
  12. LEVOTHYROXINE [Suspect]
     Active Substance: LEVOTHYROXINE
     Dosage: 875 UG, WEEKLY
     Dates: start: 201603
  13. LEVOTHYROXINE [Suspect]
     Active Substance: LEVOTHYROXINE
     Dosage: 50 UG, (INCREASED TO 50MCG)
     Dates: start: 202010
  14. LEVOTHYROXINE [Suspect]
     Active Substance: LEVOTHYROXINE
     Dosage: 50 UG, (CUT BY 50MCG)
     Dates: start: 202102
  15. LEVOTHYROXINE [Suspect]
     Active Substance: LEVOTHYROXINE
     Dosage: 50 UG, WEEKLY (CUT BY 50MCG/WEEK)
     Dates: start: 201902
  16. LEVOTHYROXINE [Suspect]
     Active Substance: LEVOTHYROXINE
     Dosage: 150 UG, WEEKLY (INCREASED DOSE BY 25MCG WEEKLY)
  17. ALLOPURINOL [Concomitant]
     Active Substance: ALLOPURINOL
     Indication: Nephrolithiasis
     Dosage: UNK
  18. FLUTICASONE FUROATE [Concomitant]
     Active Substance: FLUTICASONE FUROATE
     Dosage: UNK
  19. POTASSIUM CITRATE [Concomitant]
     Active Substance: POTASSIUM CITRATE
     Dosage: UNK
  20. SOLIFENACIN [Concomitant]
     Active Substance: SOLIFENACIN
     Dosage: UNK

REACTIONS (2)
  - Hormone level abnormal [Unknown]
  - Psychomotor hyperactivity [Unknown]
